FAERS Safety Report 7169996-1 (Version None)
Quarter: 2010Q4

REPORT INFORMATION
  Report Type: 
  Country: None (occurrence: None)
  Receive Date: 20101217
  Receipt Date: 20101213
  Transmission Date: 20110411
  Serious: Yes (Hospitalization)
  Sender: FDA-Public Use
  Company Number: IT-TYCO HEALTHCARE/MALLINCKRODT-T201002412

PATIENT
  Sex: Male

DRUGS (1)
  1. OPTIRAY 350 [Suspect]
     Indication: COMPUTERISED TOMOGRAM
     Dosage: UNK, SINGLE
     Route: 042
     Dates: start: 20101206, end: 20101206

REACTIONS (3)
  - HYPERHIDROSIS [None]
  - TACHYCARDIA [None]
  - URTICARIA [None]
